FAERS Safety Report 8433727-5 (Version None)
Quarter: 2012Q2

REPORT INFORMATION
  Report Type: 
  Country: None (occurrence: None)
  Receive Date: 20120613
  Receipt Date: 20120607
  Transmission Date: 20120825
  Serious: Yes (Life-Threatening, Hospitalization)
  Sender: FDA-Public Use
  Company Number: US-ELI_LILLY_AND_COMPANY-US201206002785

PATIENT
  Sex: Male

DRUGS (3)
  1. HUMULIN R [Suspect]
     Dosage: 35 U, OTHER
     Route: 042
  2. HUMULIN R [Suspect]
     Dosage: UNK, UNKNOWN
  3. HUMULIN R [Suspect]
     Dosage: 5 U, OTHER
     Route: 042

REACTIONS (3)
  - DRUG INEFFECTIVE [None]
  - BLOOD GLUCOSE INCREASED [None]
  - CARDIAC ARREST [None]
